FAERS Safety Report 8340601-1 (Version None)
Quarter: 2012Q1

REPORT INFORMATION
  Report Type: 
  Country: None (occurrence: None)
  Receive Date: 20120329
  Receipt Date: 20091001
  Transmission Date: 20120608
  Serious: Yes (Hospitalization)
  Sender: FDA-Public Use
  Company Number: PHEH2009US12840

PATIENT
  Age: 84 Year
  Sex: Female

DRUGS (2)
  1. NSAIDS [Concomitant]
  2. EXELON [Suspect]
     Dosage: 9.5 MG,QD, TRANSDERMAL,
     Route: 062

REACTIONS (1)
  - RENAL FAILURE ACUTE [None]
